FAERS Safety Report 10179328 (Version 1)
Quarter: 2014Q2

REPORT INFORMATION
  Report Type: Spontaneous
  Country: DK (occurrence: SE)
  Receive Date: 20140519
  Receipt Date: 20140519
  Transmission Date: 20141212
  Serious: Yes (Life-Threatening, Hospitalization)
  Sender: FDA-Public Use
  Company Number: SE-FRI-1000067409

PATIENT
  Age: 21 Year
  Sex: Female
  Weight: 59 kg

DRUGS (2)
  1. ESCITALOPRAM [Suspect]
     Indication: DEPRESSION
     Dosage: 10-15 MG DAILY
     Route: 048
     Dates: start: 2013
  2. ESCITALOPRAM [Suspect]
     Indication: ANXIETY

REACTIONS (1)
  - Depressed level of consciousness [Not Recovered/Not Resolved]
